FAERS Safety Report 21210242 (Version 12)
Quarter: 2023Q1

REPORT INFORMATION
  Report Type: Spontaneous
  Country: PL (occurrence: PL)
  Receive Date: 20220814
  Receipt Date: 20230307
  Transmission Date: 20230418
  Serious: Yes (Hospitalization, Other)
  Sender: FDA-Public Use
  Company Number: PL-NOVARTISPH-NVSC2022PL177420

PATIENT
  Age: 42 Year
  Sex: Male

DRUGS (21)
  1. CLOPIDOGREL [Interacting]
     Active Substance: CLOPIDOGREL BISULFATE
     Indication: Acute coronary syndrome
     Dosage: 75 MG, QD
     Route: 048
  2. OMEPRAZOLE [Interacting]
     Active Substance: OMEPRAZOLE
     Indication: Antiplatelet therapy
     Dosage: 40 MG, QD
     Route: 048
  3. OMEPRAZOLE [Interacting]
     Active Substance: OMEPRAZOLE
     Indication: Acute coronary syndrome
     Dosage: 80 MG, QD, DOUBLED THE DOSE
     Route: 048
  4. MEMANTINE [Interacting]
     Active Substance: MEMANTINE
     Indication: Memory impairment
     Dosage: 10 MG, QD
     Route: 048
  5. BUPROPION [Interacting]
     Active Substance: BUPROPION
     Indication: Depression
     Dosage: 300 MG, QD
     Route: 048
  6. TRAMADOL [Interacting]
     Active Substance: TRAMADOL
     Indication: Pain
     Dosage: 75 MG, TID
     Route: 048
  7. TRAMADOL [Interacting]
     Active Substance: TRAMADOL
     Dosage: 3 X 75MG/650 MG /DAY
     Route: 065
  8. SPORANOX [Interacting]
     Active Substance: ITRACONAZOLE
     Indication: Onychomycosis
     Dosage: 200MG/2XD, DOSE IN TREATMENT PULSES OF SEVEN DAYS
     Route: 065
  9. VORTIOXETINE [Suspect]
     Active Substance: VORTIOXETINE
     Indication: Antidepressant therapy
     Dosage: UNK
     Route: 065
  10. VORTIOXETINE [Suspect]
     Active Substance: VORTIOXETINE
     Indication: Depression
  11. SERTRALINE [Suspect]
     Active Substance: SERTRALINE HYDROCHLORIDE
     Indication: Antidepressant therapy
     Dosage: UNK
     Route: 065
  12. SERTRALINE [Suspect]
     Active Substance: SERTRALINE HYDROCHLORIDE
     Indication: Depression
  13. ASPIRIN [Concomitant]
     Active Substance: ASPIRIN
     Indication: Acute coronary syndrome
     Dosage: 150 MG, QD
     Route: 048
  14. NEBIVOLOL [Concomitant]
     Active Substance: NEBIVOLOL
     Indication: Acute coronary syndrome
     Dosage: 5 MG, QD
     Route: 048
  15. ZOFENOPRIL [Concomitant]
     Active Substance: ZOFENOPRIL
     Indication: Acute coronary syndrome
     Dosage: 7.5 MG, QD
     Route: 065
  16. ZOFENOPRIL [Concomitant]
     Active Substance: ZOFENOPRIL
     Dosage: 8 MG, QD
     Route: 048
  17. ACETAMINOPHEN [Concomitant]
     Active Substance: ACETAMINOPHEN
     Indication: Pain
     Dosage: 1 G, QID
     Route: 065
  18. ACETAMINOPHEN [Concomitant]
     Active Substance: ACETAMINOPHEN
     Indication: Abdominal pain upper
     Dosage: 650 MG, TID
     Route: 065
  19. ACETAMINOPHEN [Concomitant]
     Active Substance: ACETAMINOPHEN
     Indication: Myalgia
  20. DROTAVERINE [Concomitant]
     Active Substance: DROTAVERINE
     Indication: Pain
     Dosage: 3 X 80 MG
     Route: 065
  21. DROTAVERINE [Concomitant]
     Active Substance: DROTAVERINE
     Indication: Abdominal pain upper

REACTIONS (6)
  - Abdominal pain upper [Recovered/Resolved]
  - Musculoskeletal pain [Recovering/Resolving]
  - Myalgia [Recovered/Resolved]
  - Drug interaction [Recovered/Resolved]
  - Drug level increased [Recovered/Resolved]
  - Product use in unapproved indication [Unknown]
